FAERS Safety Report 13273943 (Version 1)
Quarter: 2017Q1

REPORT INFORMATION
  Report Type: Spontaneous
  Country: US (occurrence: US)
  Receive Date: 20170227
  Receipt Date: 20170227
  Transmission Date: 20170428
  Serious: Yes (Hospitalization)
  Sender: FDA-Public Use
  Company Number: US-ELI_LILLY_AND_COMPANY-US201607010665

PATIENT
  Age: 53 Year
  Sex: Female

DRUGS (6)
  1. DULOXETINE HYDROCHLORIDE. [Suspect]
     Active Substance: DULOXETINE HYDROCHLORIDE
     Indication: FIBROMYALGIA
     Dosage: 30 MG, QD
     Route: 048
  2. DULOXETINE HYDROCHLORIDE. [Suspect]
     Active Substance: DULOXETINE HYDROCHLORIDE
     Dosage: 120 MG, QD
     Route: 048
  3. CYMBALTA [Suspect]
     Active Substance: DULOXETINE HYDROCHLORIDE
     Indication: PRODUCT USED FOR UNKNOWN INDICATION
     Dosage: 30 MG, BID
     Route: 048
     Dates: start: 20121026
  4. DULOXETINE HYDROCHLORIDE. [Suspect]
     Active Substance: DULOXETINE HYDROCHLORIDE
     Dosage: 60 MG, QD
     Route: 048
  5. DULOXETINE HYDROCHLORIDE. [Suspect]
     Active Substance: DULOXETINE HYDROCHLORIDE
     Dosage: 30 MG, QD
     Route: 048
  6. ZOLOFT [Concomitant]
     Active Substance: SERTRALINE HYDROCHLORIDE
     Indication: PRODUCT USED FOR UNKNOWN INDICATION
     Dosage: UNK, QD
     Route: 048

REACTIONS (22)
  - Dysphoria [Unknown]
  - Weight increased [Unknown]
  - Abnormal dreams [Unknown]
  - Sensory disturbance [Unknown]
  - Affect lability [Unknown]
  - Suicidal ideation [Unknown]
  - Irritability [Unknown]
  - Lethargy [Unknown]
  - Confusional state [Unknown]
  - Suicide attempt [Unknown]
  - Dizziness [Unknown]
  - Paraesthesia [Unknown]
  - Disturbance in attention [Unknown]
  - Fatigue [Unknown]
  - Memory impairment [Unknown]
  - Agitation [Unknown]
  - Vertigo [Unknown]
  - Hyperhidrosis [Unknown]
  - Visual impairment [Unknown]
  - Headache [Unknown]
  - Anxiety [Unknown]
  - Drug withdrawal syndrome [Unknown]

NARRATIVE: CASE EVENT DATE: 20140415
